FAERS Safety Report 5811515-3 (Version None)
Quarter: 2008Q3

REPORT INFORMATION
  Report Type: 
  Country: None (occurrence: None)
  Receive Date: 20080714
  Receipt Date: 20080714
  Transmission Date: 20090109
  Serious: Yes (Hospitalization)
  Sender: FDA-Public Use
  Company Number: None

PATIENT
  Sex: Male

DRUGS (2)
  1. CISPLATIN [Suspect]
     Indication: LARYNGEAL CANCER
     Dosage: 100MG/M2 IV Q21DAYS
     Route: 042
     Dates: start: 20080609
  2. CETUXIMAB [Suspect]
     Indication: LARYNGEAL CANCER
     Dosage: 250MG/M2 IV QWKS
     Route: 042
     Dates: start: 20080401, end: 20080707

REACTIONS (6)
  - DEHYDRATION [None]
  - HYPOPHAGIA [None]
  - MEDICAL DEVICE COMPLICATION [None]
  - MUCOSAL INFLAMMATION [None]
  - SKIN LESION [None]
  - WEIGHT DECREASED [None]
